FAERS Safety Report 7250126-2 (Version None)
Quarter: 2011Q1

REPORT INFORMATION
  Report Type: 
  Country: None (occurrence: None)
  Receive Date: 20110128
  Receipt Date: 20101130
  Transmission Date: 20110831
  Serious: Yes (Hospitalization)
  Sender: FDA-Public Use
  Company Number: US-BAYER-201025971NA

PATIENT
  Sex: Female
  Weight: 50 kg

DRUGS (6)
  1. YASMIN [Suspect]
     Indication: PREMENSTRUAL SYNDROME
  2. YASMIN [Suspect]
     Indication: CONTRACEPTION
     Dosage: UNK UNK, UNK
     Route: 048
     Dates: start: 20050701, end: 20060101
  3. SARAFEM [Concomitant]
     Indication: PREMENSTRUAL SYNDROME
     Dosage: DAILY DOSE 10 MG
     Route: 048
     Dates: start: 20050701, end: 20050922
  4. YASMIN [Suspect]
  5. ANAPROX [Concomitant]
     Indication: DYSMENORRHOEA
     Dosage: UNK
     Dates: start: 20050701
  6. ANTIBIOTICS [Concomitant]

REACTIONS (7)
  - CHOLECYSTITIS CHRONIC [None]
  - GASTRIC PH DECREASED [None]
  - ABDOMINAL DISTENSION [None]
  - GASTROINTESTINAL DISORDER [None]
  - ABDOMINAL PAIN [None]
  - ABDOMINAL TENDERNESS [None]
  - NAUSEA [None]
